FAERS Safety Report 5490331-9 (Version None)
Quarter: 2007Q4

REPORT INFORMATION
  Report Type: 
  Country: None (occurrence: None)
  Receive Date: 20071017
  Receipt Date: 20071009
  Transmission Date: 20080405
  Serious: Yes (Hospitalization)
  Sender: FDA-Public Use
  Company Number: 2007RL000385

PATIENT
  Age: 63 Year
  Sex: Male

DRUGS (10)
  1. LOVAZA [Suspect]
     Indication: BLOOD CHOLESTEROL INCREASED
     Dosage: 1 GM; BID; PO, 2 GM; BID; PO, 2 GM; BID; PO
     Route: 048
     Dates: end: 20070826
  2. LOVAZA [Suspect]
     Indication: BLOOD CHOLESTEROL INCREASED
     Dosage: 1 GM; BID; PO, 2 GM; BID; PO, 2 GM; BID; PO
     Route: 048
     Dates: start: 20060101
  3. LOVAZA [Suspect]
     Indication: BLOOD CHOLESTEROL INCREASED
     Dosage: 1 GM; BID; PO, 2 GM; BID; PO, 2 GM; BID; PO
     Route: 048
     Dates: start: 20070801
  4. ASPIRIN [Concomitant]
  5. AMIODARONE [Concomitant]
  6. METOPROLOL [Concomitant]
  7. CLINAPRIL [Concomitant]
  8. PROTONIX /01263201/ [Concomitant]
  9. METFORMIN [Concomitant]
  10. VITAMIN E /00110501/ [Concomitant]

REACTIONS (6)
  - CORONARY ARTERY OCCLUSION [None]
  - DIABETES MELLITUS [None]
  - DYSGEUSIA [None]
  - ERUCTATION [None]
  - NAUSEA [None]
  - TREATMENT NONCOMPLIANCE [None]
